FAERS Safety Report 7104419-X (Version None)
Quarter: 2010Q4

REPORT INFORMATION
  Report Type: 
  Country: None (occurrence: None)
  Receive Date: 20101116
  Receipt Date: 20101109
  Transmission Date: 20110411
  Serious: Yes (Other)
  Sender: FDA-Public Use
  Company Number: US-AMGEN-TCS434168

PATIENT

DRUGS (9)
  1. ENBREL [Suspect]
     Indication: PSORIATIC ARTHROPATHY
     Dosage: 50 MG, 2 TIMES/WK
     Route: 058
     Dates: start: 20090804, end: 20101004
  2. ENBREL [Suspect]
     Indication: PSORIASIS
  3. NEURONTIN [Concomitant]
     Indication: PAIN IN EXTREMITY
     Dosage: 100 MG, TID
     Route: 048
     Dates: start: 20100902
  4. PRILOSEC [Concomitant]
     Indication: GASTROOESOPHAGEAL REFLUX DISEASE
     Dosage: 40 MG, QD
     Route: 048
     Dates: start: 20100420
  5. CHLORTHALIDONE [Concomitant]
     Indication: HYPERTENSION
     Dosage: 25 MG, QD
     Route: 048
     Dates: start: 20100527
  6. VICODIN ES [Concomitant]
     Indication: PAIN IN EXTREMITY
     Dosage: 750 MG, PRN
     Route: 048
     Dates: start: 20090902
  7. CLOBETASOL PROPIONATE [Concomitant]
     Indication: PSORIASIS
     Dosage: 0.05 %, BID
     Route: 061
     Dates: start: 20090429
  8. PEPCID [Concomitant]
     Indication: GASTROOESOPHAGEAL REFLUX DISEASE
     Dosage: 20 MG, QD
     Dates: start: 20090802, end: 20100420
  9. HYDROCHLOROTHIAZIDE [Concomitant]
     Dosage: 12.5 MG, QD
     Dates: start: 20090302, end: 20090804

REACTIONS (4)
  - BACK PAIN [None]
  - HYPERTENSION [None]
  - OEDEMA PERIPHERAL [None]
  - PAIN IN EXTREMITY [None]
